FAERS Safety Report 8239940 (Version 4)
Quarter: 2014Q2

REPORT INFORMATION
  Report Type: Report from Study
  Country: DE (occurrence: DE)
  Receive Date: 20111110
  Receipt Date: 20140619
  Transmission Date: 20141212
  Serious: Yes (Hospitalization)
  Sender: FDA-Public Use
  Company Number: DE-GLAXOSMITHKLINE-Z0012645A

PATIENT
  Age: 54 Year
  Sex: Male
  Weight: 92 kg

DRUGS (2)
  1. PAZOPANIB [Suspect]
     Indication: RENAL CELL CARCINOMA
     Dosage: 600MG PER DAY
     Route: 048
     Dates: start: 20111025, end: 20111031
  2. RAMIPRIL [Concomitant]
     Indication: HYPERTENSION
     Dosage: 2.5MG PER DAY
     Route: 048
     Dates: start: 2007

REACTIONS (1)
  - Pancreatitis [Recovered/Resolved]
